FAERS Safety Report 4856417-4 (Version None)
Quarter: 2005Q4

REPORT INFORMATION
  Report Type: 
  Country: None (occurrence: None)
  Receive Date: 20051215
  Receipt Date: 20051208
  Transmission Date: 20060501
  Serious: Yes (Disabling)
  Sender: FDA-Public Use
  Company Number: FRWYE216008DEC05

PATIENT
  Age: 64 Year
  Sex: Male

DRUGS (2)
  1. EFFEXOR [Suspect]
     Indication: DEPRESSION
     Dosage: 75 MG DAILY ORAL
     Route: 048
     Dates: start: 20050810, end: 20051109
  2. DEPAKENE [Concomitant]

REACTIONS (5)
  - AKINESIA [None]
  - BALANCE DISORDER [None]
  - COGWHEEL RIGIDITY [None]
  - PARKINSONIAN REST TREMOR [None]
  - PARKINSONISM [None]
